FAERS Safety Report 12469135 (Version 2)
Quarter: 2016Q4

REPORT INFORMATION
  Report Type: Spontaneous
  Country: US (occurrence: US)
  Receive Date: 20160615
  Receipt Date: 20161003
  Transmission Date: 20170207
  Serious: Yes (Hospitalization, Other)
  Sender: FDA-Public Use
  Company Number: US-GLAXOSMITHKLINE-US2016GSK085090

PATIENT
  Age: 77 Year
  Sex: Female

DRUGS (1)
  1. VENTOLIN HFA [Suspect]
     Active Substance: ALBUTEROL SULFATE
     Indication: CHRONIC OBSTRUCTIVE PULMONARY DISEASE
     Dosage: UNK, U
     Dates: start: 2013

REACTIONS (8)
  - Muscle disorder [Unknown]
  - Bedridden [Recovered/Resolved]
  - Cataract operation [Recovered/Resolved]
  - Medical induction of coma [Recovered/Resolved]
  - Abasia [Unknown]
  - Amnesia [Not Recovered/Not Resolved]
  - Dehydration [Unknown]
  - Living in residential institution [Recovered/Resolved]

NARRATIVE: CASE EVENT DATE: 201605
